FAERS Safety Report 7311189-9 (Version None)
Quarter: 2011Q1

REPORT INFORMATION
  Report Type: 
  Country: None (occurrence: None)
  Receive Date: 20110224
  Receipt Date: 20110216
  Transmission Date: 20110831
  Serious: Yes (Hospitalization)
  Sender: FDA-Public Use
  Company Number: FR-ROCHE-760428

PATIENT
  Sex: Female

DRUGS (4)
  1. RIVOTRIL [Suspect]
     Route: 048
     Dates: start: 20100501, end: 20100801
  2. NEXEN [Suspect]
     Dosage: 1 BOX EACH MONTH
     Route: 048
     Dates: start: 20100301
  3. CERAZETTE [Suspect]
     Route: 048
  4. NEXEN [Suspect]
     Dosage: DISCONTINUED
     Route: 048
     Dates: start: 20100601

REACTIONS (1)
  - FOCAL NODULAR HYPERPLASIA [None]
